FAERS Safety Report 8645128 (Version 7)
Quarter: 2013Q1

REPORT INFORMATION
  Report Type: Spontaneous
  Country: BR (occurrence: BR)
  Receive Date: 20120702
  Receipt Date: 20130328
  Transmission Date: 20140127
  Serious: Yes (Hospitalization, Other)
  Sender: FDA-Public Use
  Company Number: BR-BRISTOL-MYERS SQUIBB COMPANY-16717928

PATIENT
  Age: 78 Year
  Sex: Male
  Weight: 72 kg

DRUGS (2)
  1. SPRYCEL [Suspect]
     Indication: LEUKAEMIA
     Dosage: 3TABS50MG/D,STRTD MORE THAN 6 MONTHS AGO,INTRPT FOR 60DS,RESD WITH 2TABS,1TAB;30D.INTR 10DS:100MG/D
     Route: 048
     Dates: start: 2011
  2. SERTRALINE [Concomitant]
     Indication: NERVOUSNESS

REACTIONS (15)
  - Diarrhoea [Unknown]
  - Gastrointestinal infection [Unknown]
  - Cardiac failure [Unknown]
  - Lung disorder [Unknown]
  - Local swelling [Unknown]
  - Hepatomegaly [Unknown]
  - Splenomegaly [Unknown]
  - Platelet count decreased [Unknown]
  - Immunodeficiency [Unknown]
  - Dysentery [Recovering/Resolving]
  - Mass [Recovering/Resolving]
  - Pneumonia [Recovering/Resolving]
  - Depression [Recovering/Resolving]
  - Haemoglobin decreased [Unknown]
  - White blood cell count decreased [Unknown]
